FAERS Safety Report 18183170 (Version 1)
Quarter: 2020Q3

REPORT INFORMATION
  Report Type: Other
  Country: US (occurrence: US)
  Receive Date: 20200821
  Receipt Date: 20200821
  Transmission Date: 20201103
  Serious: Yes (Hospitalization)
  Sender: FDA-Public Use
  Company Number: US-ROCHE-2662398

PATIENT
  Age: 68 Year
  Sex: Female
  Weight: 68.1 kg

DRUGS (6)
  1. AMLODIPINE [Concomitant]
     Active Substance: AMLODIPINE BESYLATE
     Dosage: 1 IN MORNING
  2. SYNTHROID [Concomitant]
     Active Substance: LEVOTHYROXINE SODIUM
     Dosage: 1 IN MORNING
  3. BACLOFEN. [Concomitant]
     Active Substance: BACLOFEN
     Dosage: 1 EVERY 8 HOURS
  4. NARCO [Concomitant]
     Indication: PAIN
     Dosage: 1 EVERY 4 HOURS, AS NEEDED
  5. OCREVUS [Suspect]
     Active Substance: OCRELIZUMAB
     Indication: RELAPSING-REMITTING MULTIPLE SCLEROSIS
     Route: 042
  6. PRILOSEC [Concomitant]
     Active Substance: OMEPRAZOLE MAGNESIUM
     Dosage: 1 IN MORNING AND AT NIGHT

REACTIONS (3)
  - Cystitis [Recovered/Resolved]
  - Fall [Unknown]
  - Hip fracture [Recovered/Resolved]

NARRATIVE: CASE EVENT DATE: 202004
